FAERS Safety Report 4891347-3 (Version None)
Quarter: 2005Q4

REPORT INFORMATION
  Report Type: 
  Country: None (occurrence: None)
  Receive Date: 20051223
  Receipt Date: 20050921
  Transmission Date: 20060501
  Serious: No
  Sender: FDA-Public Use
  Company Number: 217979

PATIENT
  Age: 61 Year
  Sex: Female

DRUGS (4)
  1. AVASTIN [Suspect]
     Indication: OVARIAN CANCER
     Dosage: Q3W
  2. AMBIEN [Concomitant]
  3. XANAX [Concomitant]
  4. MULTIVITAMIN (MULTIVITAMINS NOS) [Concomitant]

REACTIONS (2)
  - BURNING SENSATION [None]
  - PARAESTHESIA [None]
